FAERS Safety Report 23547707 (Version 1)
Quarter: 2024Q1

REPORT INFORMATION
  Report Type: Spontaneous
  Country: US (occurrence: US)
  Receive Date: 20240221
  Receipt Date: 20240221
  Transmission Date: 20240410
  Serious: Yes (Hospitalization, Other)
  Sender: FDA-Public Use
  Company Number: US-SUN PHARMACEUTICAL INDUSTRIES LTD-2024R1-431946

PATIENT
  Age: 31 Year
  Sex: Female

DRUGS (15)
  1. METOPROLOL [Suspect]
     Active Substance: METOPROLOL
     Indication: Heart disease congenital
     Dosage: UNKNOWN
     Route: 065
  2. DIGOXIN [Suspect]
     Active Substance: DIGOXIN
     Indication: Heart disease congenital
     Dosage: UNKNOWN
     Route: 065
  3. TORSEMIDE [Suspect]
     Active Substance: TORSEMIDE
     Indication: Heart disease congenital
     Dosage: UNKNOWN
     Route: 065
  4. BUMETANIDE [Suspect]
     Active Substance: BUMETANIDE
     Indication: Heart disease congenital
     Dosage: UNKNOWN
     Route: 042
  5. METOLAZONE [Suspect]
     Active Substance: METOLAZONE
     Indication: Heart disease congenital
     Dosage: UNKNOWN
     Route: 042
  6. BETAMETHASONE [Suspect]
     Active Substance: BETAMETHASONE\BETAMETHASONE DIPROPIONATE
     Indication: Pulmonary mass
     Dosage: UNKNOWN
     Route: 065
  7. MILRINONE [Suspect]
     Active Substance: MILRINONE
     Indication: Cardiac disorder
     Dosage: 0.3  ?G/KG/MIN
     Route: 065
  8. BUPIVACAINE [Suspect]
     Active Substance: BUPIVACAINE
     Indication: Cardiac disorder
     Dosage: 150  ?G
     Route: 039
  9. MORPHINE [Suspect]
     Active Substance: MORPHINE
     Indication: Cardiac disorder
     Dosage: 150  ?G
     Route: 039
  10. FENTANYL [Suspect]
     Active Substance: FENTANYL\FENTANYL CITRATE
     Indication: Cardiac disorder
     Dosage: 15  ?G
     Route: 039
  11. LIDOCAINE [Suspect]
     Active Substance: LIDOCAINE
     Indication: Cardiac disorder
     Dosage: 1.5 PERCENT
     Route: 065
  12. EPINEPHRINE [Suspect]
     Active Substance: EPINEPHRINE
     Indication: Cardiac disorder
     Dosage: UNKNOWN
     Route: 065
  13. NOREPINEPHRINE [Suspect]
     Active Substance: NOREPINEPHRINE
     Indication: Cardiac disorder
     Dosage: UNKNOWN
     Route: 065
  14. MAGNESIUM [Suspect]
     Active Substance: MAGNESIUM
     Indication: Cardiac disorder
     Dosage: 1 GRAM PER HOUR PER SQUARE METRE
     Route: 065
  15. POTASSIUM [Suspect]
     Active Substance: POTASSIUM
     Indication: Cardiac disorder
     Dosage: UNKNOWN
     Route: 065

REACTIONS (3)
  - Exposure during pregnancy [Unknown]
  - Condition aggravated [Unknown]
  - Premature delivery [Unknown]
